FAERS Safety Report 19551392 (Version 3)
Quarter: 2022Q1

REPORT INFORMATION
  Report Type: Spontaneous
  Country: FR (occurrence: FR)
  Receive Date: 20210715
  Receipt Date: 20220307
  Transmission Date: 20220423
  Serious: Yes (Death, Hospitalization, Other)
  Sender: FDA-Public Use
  Company Number: FR-JNJFOC-20210725660

PATIENT
  Age: 74 Year
  Sex: Male
  Weight: 73 kg

DRUGS (17)
  1. STELARA [Suspect]
     Active Substance: USTEKINUMAB
     Indication: Colitis ulcerative
     Route: 058
     Dates: start: 20210111, end: 20210508
  2. KARDEGIC [Suspect]
     Active Substance: ASPIRIN DL-LYSINE
     Indication: Product used for unknown indication
     Route: 065
  3. HEPARIN [Suspect]
     Active Substance: HEPARIN SODIUM
     Indication: Product used for unknown indication
     Route: 065
     Dates: start: 20210626
  4. PREDNISONE [Concomitant]
     Active Substance: PREDNISONE
     Indication: Colitis ulcerative
     Route: 065
  5. PREDNISONE [Concomitant]
     Active Substance: PREDNISONE
     Route: 065
     Dates: start: 20210628
  6. ROWASA [Concomitant]
     Active Substance: MESALAMINE
     Indication: Colitis ulcerative
     Route: 065
  7. PERINDOPRIL [Concomitant]
     Active Substance: PERINDOPRIL
  8. INDAPAMIDE [Concomitant]
     Active Substance: INDAPAMIDE
  9. FELODIPINE [Concomitant]
     Active Substance: FELODIPINE
  10. HUMALOG [Concomitant]
     Active Substance: INSULIN LISPRO
     Dosage: 25 6IU MORNING, 300/3ML 8IU AT NOON
  11. INDACATEROL [Concomitant]
     Active Substance: INDACATEROL
     Dosage: 1DOSE IN THE MORNING
     Route: 065
  12. ISOPTIN [Concomitant]
     Active Substance: VERAPAMIL HYDROCHLORIDE
  13. ALFUZOSIN [Concomitant]
     Active Substance: ALFUZOSIN
  14. SIMVASTATIN [Concomitant]
     Active Substance: SIMVASTATIN
  15. LANSOPRAZOLE [Concomitant]
     Active Substance: LANSOPRAZOLE
  16. INSULIN NOS [Concomitant]
     Active Substance: INSULIN NOS
  17. PENTASA [Concomitant]
     Active Substance: MESALAMINE
     Dosage: ONE ENEMA IN THE EVENING
     Route: 054

REACTIONS (7)
  - Septic shock [Fatal]
  - Multiple organ dysfunction syndrome [Fatal]
  - Acute respiratory distress syndrome [Unknown]
  - Duodenal ulcer haemorrhage [Unknown]
  - Atrial fibrillation [Unknown]
  - Acute kidney injury [Unknown]
  - Pneumonia [Unknown]

NARRATIVE: CASE EVENT DATE: 20210622
